FAERS Safety Report 19133531 (Version 3)
Quarter: 2021Q2

REPORT INFORMATION
  Report Type: Spontaneous
  Country: JP (occurrence: JP)
  Receive Date: 20210414
  Receipt Date: 20210521
  Transmission Date: 20210717
  Serious: Yes (Life-Threatening, Other)
  Sender: FDA-Public Use
  Company Number: JP-GLAXOSMITHKLINE-JP2021JPN016229

PATIENT
  Age: 82 Year
  Sex: Male

DRUGS (4)
  1. ANORO ELLIPTA [Suspect]
     Active Substance: UMECLIDINIUM BROMIDE\VILANTEROL TRIFENATATE
     Indication: CHRONIC OBSTRUCTIVE PULMONARY DISEASE
     Dosage: UNK, QD, 1 INHALATION
     Route: 055
     Dates: start: 201910, end: 202007
  2. TRELEGY ELLIPTA [Suspect]
     Active Substance: FLUTICASONE FUROATE\UMECLIDINIUM BROMIDE\VILANTEROL TRIFENATATE
     Indication: CHRONIC OBSTRUCTIVE PULMONARY DISEASE
     Dosage: 100 ?G, QD, 1 INHALATION
     Route: 055
     Dates: start: 202007
  3. THEODUR TABLETS [Concomitant]
     Dosage: 200 MG, BID
     Route: 048
  4. MUCOSOLVAN L TABLET [Concomitant]
     Dosage: UNK
     Route: 048

REACTIONS (9)
  - Dysphonia [Not Recovered/Not Resolved]
  - Iron deficiency anaemia [Unknown]
  - Condition aggravated [Not Recovered/Not Resolved]
  - Dyspnoea exertional [Not Recovered/Not Resolved]
  - Gastric cancer [Not Recovered/Not Resolved]
  - General physical health deterioration [Not Recovered/Not Resolved]
  - Cancer pain [Unknown]
  - Melaena [Unknown]
  - Respiratory disorder [Unknown]

NARRATIVE: CASE EVENT DATE: 202001
